FAERS Safety Report 18333649 (Version 1)
Quarter: 2020Q4

REPORT INFORMATION
  Report Type: Spontaneous
  Country: DE (occurrence: DE)
  Receive Date: 20201001
  Receipt Date: 20201001
  Transmission Date: 20210113
  Serious: Yes (Life-Threatening, Hospitalization, Other)
  Sender: FDA-Public Use
  Company Number: DE-MACLEODS PHARMACEUTICALS US LTD-MAC2020028220

PATIENT

DRUGS (1)
  1. QUETIAPINE EXTENDED RELEASE [Suspect]
     Active Substance: QUETIAPINE
     Indication: SUICIDE ATTEMPT
     Dosage: 18.2 GRAM, SINGLE, XR QUETIAPINE
     Route: 048

REACTIONS (4)
  - Toxicity to various agents [Recovering/Resolving]
  - Bezoar [Recovering/Resolving]
  - Intentional overdose [Recovering/Resolving]
  - Coma [Recovering/Resolving]
